FAERS Safety Report 9486009 (Version 1)
Quarter: 2013Q3

REPORT INFORMATION
  Report Type: Spontaneous
  Country: US (occurrence: None)
  Receive Date: 20130827
  Receipt Date: 20130827
  Transmission Date: 20140515
  Serious: Yes (Life-Threatening, Hospitalization, Other)
  Sender: FDA-Public Use
  Company Number: None

PATIENT
  Sex: 0

DRUGS (1)
  1. LANTUS [Suspect]
     Dates: start: 20130608, end: 20130615

REACTIONS (2)
  - Hypoglycaemia [None]
  - Product formulation issue [None]
